FAERS Safety Report 9306357 (Version 3)
Quarter: 2013Q4

REPORT INFORMATION
  Report Type: Spontaneous
  Country: US (occurrence: US)
  Receive Date: 20130523
  Receipt Date: 20131227
  Transmission Date: 20140711
  Serious: Yes (Death, Hospitalization)
  Sender: FDA-Public Use
  Company Number: US-SANOFI-AVENTIS-2013SA051038

PATIENT
  Age: 67 Year
  Sex: Male
  Weight: 81.78 kg

DRUGS (14)
  1. MULTAQ [Suspect]
     Indication: ARRHYTHMIA
     Dates: start: 20100507
  2. TOPROL XL [Concomitant]
     Indication: PULMONARY TOXICITY
  3. ASPIRIN [Concomitant]
  4. ASPIRIN [Concomitant]
  5. GLYCERYL TRINITRATE [Concomitant]
     Indication: MUSCULOSKELETAL PAIN
  6. GLYCERYL TRINITRATE [Concomitant]
     Indication: BACK PAIN
  7. ENOXAPARIN SODIUM [Concomitant]
     Dosage: ALSO GIVEN ON 8 MAY 2010
     Route: 058
     Dates: start: 20100507
  8. LIPITOR [Concomitant]
  9. FUROSEMIDE [Concomitant]
  10. VALIUM [Concomitant]
  11. ACTONEL [Concomitant]
  12. PREDNISONE [Concomitant]
     Indication: PULMONARY TOXICITY
  13. PREDNISONE [Concomitant]
     Indication: TOXICITY TO VARIOUS AGENTS
  14. PREDNISONE [Concomitant]
     Indication: HYPOTHYROIDISM

REACTIONS (9)
  - Cardiac arrest [Fatal]
  - Arteriosclerosis coronary artery [Fatal]
  - Cardiac hypertrophy [Fatal]
  - Pulmonary hypertension [Fatal]
  - Chest pain [Fatal]
  - Musculoskeletal pain [Fatal]
  - Musculoskeletal pain [Fatal]
  - Nausea [Fatal]
  - Hypotension [Fatal]
